FAERS Safety Report 24765634 (Version 1)
Quarter: 2024Q4

REPORT INFORMATION
  Report Type: Spontaneous
  Country: US (occurrence: None)
  Receive Date: 20241221
  Receipt Date: 20241221
  Transmission Date: 20250115
  Serious: Yes (Death)
  Sender: Public
  Company Number: None

PATIENT
  Age: 60 Year
  Sex: Male

DRUGS (2)
  1. OPSUMIT [Suspect]
     Active Substance: MACITENTAN
     Indication: Pulmonary hypertension
     Dosage: 10MG QD ORAL
     Route: 048
     Dates: start: 20190801, end: 20241208
  2. TADALAFIL [Suspect]
     Active Substance: TADALAFIL
     Indication: Pulmonary hypertension
     Dosage: 40MG QD ORAL
     Route: 048
     Dates: start: 20211228, end: 20241208

REACTIONS (4)
  - SARS-CoV-2 test positive [None]
  - Hypotension [None]
  - Hypoglycaemia [None]
  - Confusional state [None]

NARRATIVE: CASE EVENT DATE: 20241208
